FAERS Safety Report 7388124-0 (Version None)
Quarter: 2011Q1

REPORT INFORMATION
  Report Type: 
  Country: None (occurrence: None)
  Receive Date: 20110324
  Receipt Date: 20110315
  Transmission Date: 20110831
  Serious: Yes (Hospitalization)
  Sender: FDA-Public Use
  Company Number: 2011MA002450

PATIENT
  Age: 74 Year
  Sex: Male

DRUGS (1)
  1. CLONAZEPAM [Suspect]
     Dosage: 2 MG

REACTIONS (4)
  - ELECTROCARDIOGRAM RR INTERVAL PROLONGED [None]
  - PALPITATIONS [None]
  - CHEST DISCOMFORT [None]
  - CONDITION AGGRAVATED [None]
